FAERS Safety Report 12092487 (Version 1)
Quarter: 2016Q1

REPORT INFORMATION
  Report Type: Spontaneous
  Country: US (occurrence: None)
  Receive Date: 20160217
  Receipt Date: 20160217
  Transmission Date: 20160526
  Serious: Yes (Life-Threatening, Hospitalization)
  Sender: FDA-Public Use
  Company Number: None

PATIENT
  Age: 69 Year
  Sex: Male
  Weight: 98 kg

DRUGS (1)
  1. REGADENOSON [Suspect]
     Active Substance: REGADENOSON
     Route: 042
     Dates: start: 20160127, end: 20160127

REACTIONS (6)
  - Bradycardia [None]
  - Infusion related reaction [None]
  - Presyncope [None]
  - Dizziness [None]
  - Nodal rhythm [None]
  - Hypotension [None]

NARRATIVE: CASE EVENT DATE: 20160127
